FAERS Safety Report 13615432 (Version 2)
Quarter: 2017Q2

REPORT INFORMATION
  Report Type: Spontaneous
  Country: PT (occurrence: IE)
  Receive Date: 20170606
  Receipt Date: 20170627
  Transmission Date: 20170830
  Serious: Yes (Other)
  Sender: FDA-Public Use
  Company Number: PT-SUNOVION-2017SUN002374

PATIENT

DRUGS (2)
  1. ZEBINIX [Suspect]
     Active Substance: ESLICARBAZEPINE ACETATE
     Indication: EPILEPSY
     Dosage: UNK, 2X / DAY
     Route: 048
  2. ZEBINIX [Suspect]
     Active Substance: ESLICARBAZEPINE ACETATE
     Dosage: UNK, 2X / DAY THROUGH A GASTROSTOMY TUBE;
     Route: 065

REACTIONS (11)
  - Dizziness [Unknown]
  - Wrong technique in product usage process [Unknown]
  - Off label use [Unknown]
  - Drug ineffective [Unknown]
  - Somnolence [Unknown]
  - Hyponatraemia [Unknown]
  - Therapeutic response unexpected [Unknown]
  - Seizure [Unknown]
  - Abnormal behaviour [Unknown]
  - Incorrect route of drug administration [Unknown]
  - Inappropriate schedule of drug administration [Unknown]
